FAERS Safety Report 8396339-8 (Version None)
Quarter: 2012Q1

REPORT INFORMATION
  Report Type: 
  Country: None (occurrence: None)
  Receive Date: 20120323
  Receipt Date: 20110801
  Transmission Date: 20120608
  Serious: Yes (Hospitalization)
  Sender: FDA-Public Use
  Company Number: 163-21880-11073008

PATIENT
  Age: 76 Year
  Sex: Female

DRUGS (3)
  1. DARVOCET (DOXYPHENE) [Concomitant]
  2. REVLIMID [Suspect]
     Indication: MULTIPLE MYELOMA
     Dosage: 25 MG, DAILY X 21 OF 28 DAYS, PO
     Route: 048
     Dates: start: 20110610, end: 20110714
  3. DECADRON [Concomitant]

REACTIONS (3)
  - DEHYDRATION [None]
  - DIARRHOEA [None]
  - RASH [None]
